FAERS Safety Report 21577679 (Version 2)
Quarter: 2022Q4

REPORT INFORMATION
  Report Type: Report from Study
  Country: NL (occurrence: NL)
  Receive Date: 20221110
  Receipt Date: 20221118
  Transmission Date: 20230113
  Serious: Yes (Other)
  Sender: FDA-Public Use
  Company Number: NL-ARBOR PHARMACEUTICALS, LLC-NL-2022ARB002799

PATIENT
  Sex: Male

DRUGS (4)
  1. TRIPTODUR [Suspect]
     Active Substance: TRIPTORELIN
     Indication: Prostate cancer
     Dosage: STRENGTH: 22.5 MG (22.5 MG,24 WEEK)
     Route: 030
     Dates: start: 20210609
  2. TRIPTODUR [Suspect]
     Active Substance: TRIPTORELIN
     Dosage: STRENGTH: 22.5 MG (22.5 MG,24 WEEK)
     Route: 030
  3. TRIPTODUR [Suspect]
     Active Substance: TRIPTORELIN
  4. TRIPTODUR [Suspect]
     Active Substance: TRIPTORELIN

REACTIONS (1)
  - Osteoarthritis [Recovering/Resolving]
